FAERS Safety Report 7901954-9 (Version None)
Quarter: 2011Q4

REPORT INFORMATION
  Report Type: 
  Country: None (occurrence: None)
  Receive Date: 20111108
  Receipt Date: 20111030
  Transmission Date: 20120403
  Serious: Yes (Hospitalization, Other)
  Sender: FDA-Public Use
  Company Number: NZ-B.I. PHARMACEUTICALS,INC./RIDGEFIELD-2011-AU-00636AU

PATIENT
  Sex: Male
  Weight: 93 kg

DRUGS (5)
  1. SIMVASTATIN [Concomitant]
     Dosage: 20 MG
     Route: 048
  2. PRADAXA [Suspect]
     Dosage: 220 MG
     Dates: start: 20110703, end: 20110708
  3. PARACETAMOL [Concomitant]
     Dosage: 4 G
     Route: 048
  4. WARFARIN SODIUM [Suspect]
     Dates: end: 20110629
  5. ACETYLSALICYLIC ACID SRT [Concomitant]
     Dosage: 100 MG
     Route: 048

REACTIONS (3)
  - RECTAL CANCER [None]
  - RECTAL HAEMORRHAGE [None]
  - MEDICATION ERROR [None]
